FAERS Safety Report 9099690 (Version 4)
Quarter: 2013Q1

REPORT INFORMATION
  Report Type: Spontaneous
  Country: BR (occurrence: BR)
  Receive Date: 20130214
  Receipt Date: 20130326
  Transmission Date: 20140127
  Serious: Yes (Hospitalization, Other)
  Sender: FDA-Public Use
  Company Number: PHHY2013BR013901

PATIENT
  Age: 51 Year
  Sex: Male

DRUGS (2)
  1. DIOVAN HCT [Suspect]
     Indication: HYPERTENSION
     Dosage: 1 DF(80 MG VALS/12.5 MG HCT) QD
     Route: 048
     Dates: end: 201210
  2. DIOVAN HCT [Suspect]
     Dosage: 1 DF (160 MG VALS AND 12.5 MG HYDRO), UNK
     Route: 048
     Dates: start: 201210

REACTIONS (6)
  - Myocardial infarction [Unknown]
  - Chest pain [Recovering/Resolving]
  - Malaise [Unknown]
  - Blood pressure increased [Unknown]
  - Bone pain [Recovering/Resolving]
  - Dizziness [Not Recovered/Not Resolved]
